FAERS Safety Report 8405308-0 (Version None)
Quarter: 2012Q2

REPORT INFORMATION
  Report Type: 
  Country: None (occurrence: None)
  Receive Date: 20120604
  Receipt Date: 20120530
  Transmission Date: 20120825
  Serious: Yes (Other)
  Sender: FDA-Public Use
  Company Number: DE-AMGEN-DEUSP2012033553

PATIENT
  Sex: Male

DRUGS (1)
  1. XGEVA [Suspect]

REACTIONS (4)
  - TOOTHACHE [None]
  - ACUTE PHASE REACTION [None]
  - PAIN IN JAW [None]
  - GINGIVAL BLEEDING [None]
